FAERS Safety Report 5427132-3 (Version None)
Quarter: 2007Q3

REPORT INFORMATION
  Report Type: 
  Country: None (occurrence: None)
  Receive Date: 20070824
  Receipt Date: 20070824
  Transmission Date: 20080115
  Serious: Yes (Other)
  Sender: FDA-Public Use
  Company Number: None

PATIENT
  Sex: Female
  Weight: 40.8237 kg

DRUGS (1)
  1. ABILIFY [Suspect]
     Indication: MAJOR DEPRESSION
     Dosage: 1 MG -1/2 TABLET- Q.D. PO
     Route: 048
     Dates: start: 20070802, end: 20070803

REACTIONS (1)
  - PHARYNGEAL HAEMORRHAGE [None]
